FAERS Safety Report 16883427 (Version 5)
Quarter: 2020Q2

REPORT INFORMATION
  Report Type: Spontaneous
  Country: DE (occurrence: DE)
  Receive Date: 20191004
  Receipt Date: 20200414
  Transmission Date: 20200713
  Serious: Yes (Other)
  Sender: FDA-Public Use
  Company Number: DE-ROCHE-2419804

PATIENT
  Age: 58 Year
  Sex: Female
  Weight: 65 kg

DRUGS (5)
  1. HERZUMA [Suspect]
     Active Substance: TRASTUZUMAB-PKRB
     Route: 042
     Dates: start: 20190527, end: 20190826
  2. PERJETA [Suspect]
     Active Substance: PERTUZUMAB
     Route: 042
     Dates: start: 20190527, end: 20190826
  3. EPIRUBICIN [Concomitant]
     Active Substance: EPIRUBICIN
     Route: 065
  4. CYCLOPHOSPHAMIDE. [Concomitant]
     Active Substance: CYCLOPHOSPHAMIDE
     Route: 065
  5. PACLITAXEL. [Concomitant]
     Active Substance: PACLITAXEL
     Route: 065

REACTIONS (3)
  - Cardiac failure [Recovering/Resolving]
  - Pulmonary hypertension [Recovered/Resolved]
  - Toxic cardiomyopathy [Recovering/Resolving]

NARRATIVE: CASE EVENT DATE: 20190912
